FAERS Safety Report 6257091-5 (Version None)
Quarter: 2009Q3

REPORT INFORMATION
  Report Type: 
  Country: None (occurrence: None)
  Receive Date: 20090706
  Receipt Date: 20090624
  Transmission Date: 20100115
  Serious: Yes (Other)
  Sender: FDA-Public Use
  Company Number: B0580333A

PATIENT
  Sex: Male

DRUGS (11)
  1. AUGMENTIN '125' [Suspect]
     Indication: ANTIBIOTIC THERAPY
     Route: 042
     Dates: start: 20090403
  2. FIBRINOGEN [Suspect]
     Route: 042
     Dates: start: 20090403
  3. METHYLENE BLUE [Concomitant]
     Route: 065
     Dates: start: 20090401
  4. PLASMA TRANSFUSION [Concomitant]
     Route: 065
     Dates: start: 20090401
  5. PLATELETS [Concomitant]
     Route: 065
     Dates: start: 20090401
  6. CONCENTRATED RED CELLS [Concomitant]
     Route: 065
     Dates: start: 20090401
  7. NORADRENALINE [Concomitant]
     Route: 065
  8. DEPAKENE [Concomitant]
     Route: 065
  9. EQUANIL [Concomitant]
     Route: 065
  10. FENOFIBRATE [Concomitant]
     Route: 065
  11. DOLIPRANE [Concomitant]
     Route: 065

REACTIONS (5)
  - FACE OEDEMA [None]
  - HISTAMINE LEVEL INCREASED [None]
  - HYPERSENSITIVITY [None]
  - TRYPTASE INCREASED [None]
  - URTICARIA [None]
